FAERS Safety Report 14659983 (Version 5)
Quarter: 2019Q1

REPORT INFORMATION
  Report Type: Report from Study
  Country: FR (occurrence: FR)
  Receive Date: 20180320
  Receipt Date: 20190307
  Transmission Date: 20190417
  Serious: Yes (Other)
  Sender: FDA-Public Use
  Company Number: FR-MYLANLABS-2018M1016911

PATIENT
  Age: 67 Year
  Sex: Male
  Weight: 73 kg

DRUGS (24)
  1. HUMIRA [Suspect]
     Active Substance: ADALIMUMAB
     Indication: PSORIASIS
     Dosage: 80 MG, ONCE WEEKLY
     Route: 058
     Dates: start: 20160201, end: 20160208
  2. MYCOSTER                           /00619301/ [Concomitant]
     Active Substance: CICLOPIROX\CICLOPIROX OLAMINE
     Indication: PRODUCT USED FOR UNKNOWN INDICATION
     Dosage: UNK
     Dates: start: 20161110, end: 20161219
  3. METHOTREXATE. [Suspect]
     Active Substance: METHOTREXATE
     Indication: PSORIASIS
     Dosage: 15 MG, ONCE WEEKLY
     Route: 048
     Dates: start: 20100621, end: 20110321
  4. METHOTREXATE. [Suspect]
     Active Substance: METHOTREXATE
     Dosage: 20 MG, ONCE WEEKLY
     Route: 048
     Dates: start: 20110321, end: 20110509
  5. METHOTREXATE. [Suspect]
     Active Substance: METHOTREXATE
     Dosage: 7.5 MG, ONCE WEEKLY
     Route: 048
     Dates: start: 20160523, end: 20160718
  6. STELARA [Suspect]
     Active Substance: USTEKINUMAB
     Dosage: 45 MG, ONCE EVERY 12 WEEKS
     Route: 058
     Dates: start: 20130810, end: 20151201
  7. ENBREL [Suspect]
     Active Substance: ETANERCEPT
     Indication: PSORIASIS
     Dosage: 50 MG, TWICE WEEKLY
     Route: 058
     Dates: start: 20160425, end: 20161024
  8. METHOTREXATE. [Suspect]
     Active Substance: METHOTREXATE
     Dosage: 10 MG, ONCE WEEKLY
     Route: 048
     Dates: start: 20110509, end: 20110606
  9. METHOTREXATE. [Suspect]
     Active Substance: METHOTREXATE
     Dosage: UNK
     Route: 048
  10. ENBREL [Suspect]
     Active Substance: ETANERCEPT
     Dosage: UNK
     Route: 058
  11. COSENTYX [Suspect]
     Active Substance: SECUKINUMAB
     Indication: PSORIASIS
     Dosage: 300 MG, ONCE WEEKLY
     Route: 058
     Dates: start: 20161110, end: 20161201
  12. HUMIRA [Suspect]
     Active Substance: ADALIMUMAB
     Dosage: 80 UNK
     Route: 058
     Dates: start: 20160201, end: 20160201
  13. LOCAPRED [Concomitant]
     Active Substance: DESONIDE
     Indication: PRODUCT USED FOR UNKNOWN INDICATION
     Dosage: UNK
     Dates: start: 20161219
  14. STELARA [Suspect]
     Active Substance: USTEKINUMAB
     Indication: PSORIASIS
     Dosage: 45 MG, ONCE EVERY 4 WEEKS
     Route: 058
     Dates: start: 20110719, end: 20110817
  15. FOLIC ACID. [Suspect]
     Active Substance: FOLIC ACID
     Indication: PSORIASIS
     Dosage: 5 MG, ONCE WEEKLY
     Route: 048
     Dates: start: 20160523, end: 20160718
  16. METHOTREXATE. [Suspect]
     Active Substance: METHOTREXATE
     Dosage: 7.5 MG, ONCE WEEKLY
     Route: 048
     Dates: start: 20110606, end: 20110711
  17. STELARA [Suspect]
     Active Substance: USTEKINUMAB
     Dosage: 45 MG, ONCE EVERY 4 WEEKS
     Route: 058
     Dates: start: 20130708, end: 20130810
  18. STELARA [Suspect]
     Active Substance: USTEKINUMAB
     Dosage: 45 MG, CYCLE
     Route: 058
  19. AUGMENTIN [Concomitant]
     Active Substance: AMOXICILLIN\CLAVULANATE POTASSIUM
     Indication: PRODUCT USED FOR UNKNOWN INDICATION
     Dosage: UNK
     Dates: start: 20170127
  20. DAIVOBET [Concomitant]
     Active Substance: BETAMETHASONE DIPROPIONATE\CALCIPOTRIENE
     Indication: PRODUCT USED FOR UNKNOWN INDICATION
     Dosage: UNK
     Dates: start: 20160718
  21. FLIXOVATE [Concomitant]
     Active Substance: FLUTICASONE PROPIONATE
     Indication: PRODUCT USED FOR UNKNOWN INDICATION
     Dosage: UNK
     Dates: start: 20160718, end: 20161110
  22. STELARA [Suspect]
     Active Substance: USTEKINUMAB
     Dosage: 45 MG, ONCE EVERY 12 WEEKS
     Route: 058
     Dates: start: 20110817, end: 20130318
  23. HUMIRA [Suspect]
     Active Substance: ADALIMUMAB
     Dosage: 80 MG, EVERY 2 WEEKS
     Route: 058
     Dates: start: 20160208, end: 20160425
  24. FLIXOVATE [Concomitant]
     Active Substance: FLUTICASONE PROPIONATE
     Dosage: UNK
     Dates: start: 20161219

REACTIONS (4)
  - Functional gastrointestinal disorder [Recovered/Resolved with Sequelae]
  - Adenocarcinoma of colon [Recovered/Resolved with Sequelae]
  - Rectal haemorrhage [Recovered/Resolved with Sequelae]
  - Embolism [Recovered/Resolved with Sequelae]

NARRATIVE: CASE EVENT DATE: 201712
